FAERS Safety Report 24706065 (Version 1)
Quarter: 2024Q4

REPORT INFORMATION
  Report Type: Other
  Country: AU (occurrence: AU)
  Receive Date: 20241206
  Receipt Date: 20241206
  Transmission Date: 20250115
  Serious: Yes (Other)
  Sender: B BRAUN
  Company Number: AU-B.Braun Medical Inc.-2166542

PATIENT
  Sex: Female

DRUGS (1)
  1. HEPARIN SODIUM IN DEXTROSE [Suspect]
     Active Substance: HEPARIN SODIUM
     Indication: Anticoagulant therapy

REACTIONS (5)
  - Postpartum haemorrhage [Unknown]
  - Drug ineffective [Unknown]
  - Activated partial thromboplastin time shortened [Unknown]
  - Anaemia [Unknown]
  - Haemorrhage [Unknown]
